FAERS Safety Report 6423315-4 (Version None)
Quarter: 2009Q4

REPORT INFORMATION
  Report Type: 
  Country: None (occurrence: None)
  Receive Date: 20091102
  Receipt Date: 20091026
  Transmission Date: 20100525
  Serious: Yes (Other)
  Sender: FDA-Public Use
  Company Number: US-ELI_LILLY_AND_COMPANY-US200910006470

PATIENT
  Sex: Female

DRUGS (10)
  1. HUMALOG MIX 50/50 [Suspect]
  2. HUMALOG MIX 75/25 [Suspect]
  3. HUMALOG MIX 50/50 [Suspect]
     Dosage: UNK, UNK
  4. HUMALOG MIX 75/25 [Suspect]
  5. HUMALOG [Suspect]
  6. PLAVIX [Concomitant]
  7. DIOVAN [Concomitant]
  8. TOPROL-XL [Concomitant]
  9. PRILOSEC [Concomitant]
  10. VITAMIN D [Concomitant]

REACTIONS (6)
  - CEREBROVASCULAR ACCIDENT [None]
  - DRUG DISPENSING ERROR [None]
  - GAIT DISTURBANCE [None]
  - INTENTIONAL DRUG MISUSE [None]
  - VISUAL IMPAIRMENT [None]
  - WRONG DRUG ADMINISTERED [None]
